FAERS Safety Report 16551397 (Version 1)
Quarter: 2019Q3

REPORT INFORMATION
  Report Type: Spontaneous
  Country: US (occurrence: US)
  Receive Date: 20190529
  Receipt Date: 20190529
  Transmission Date: 20191004
  Serious: Yes (Hospitalization)
  Sender: FDA-Public Use
  Company Number: None

PATIENT
  Age: 63 Year
  Sex: Male

DRUGS (16)
  1. SMZ/TMP [Concomitant]
     Active Substance: SULFAMETHOXAZOLE\TRIMETHOPRIM
  2. CARVEDILOL. [Concomitant]
     Active Substance: CARVEDILOL
  3. TACROLIMUS 1MG [Suspect]
     Active Substance: TACROLIMUS
     Indication: RENAL TRANSPLANT
     Route: 048
     Dates: start: 20170817
  4. NATEGLINIDE. [Concomitant]
     Active Substance: NATEGLINIDE
  5. TAMSULOSIN [Concomitant]
     Active Substance: TAMSULOSIN
  6. GLIPIZIDE. [Concomitant]
     Active Substance: GLIPIZIDE
  7. PEG-3360 [Concomitant]
  8. PRAVASTATTIN [Concomitant]
     Active Substance: PRAVASTATIN
  9. WARFARIN [Concomitant]
     Active Substance: WARFARIN
  10. MYCOPHENOLATE 500MG [Suspect]
     Active Substance: MYCOPHENOLIC ACID
     Indication: RENAL TRANSPLANT
     Route: 048
     Dates: start: 20170817
  11. MECLIZINE [Concomitant]
     Active Substance: MECLIZINE HYDROCHLORIDE
  12. FUROSEMIDE. [Concomitant]
     Active Substance: FUROSEMIDE
  13. OMEPRAZOLE. [Concomitant]
     Active Substance: OMEPRAZOLE
  14. VITAMIN D [Concomitant]
     Active Substance: VITAMIN D NOS
  15. ALLOPURINOL. [Concomitant]
     Active Substance: ALLOPURINOL
  16. PREDNISONE. [Concomitant]
     Active Substance: PREDNISONE

REACTIONS (1)
  - Cyst removal [None]
